FAERS Safety Report 6644610-X (Version None)
Quarter: 2010Q1

REPORT INFORMATION
  Report Type: 
  Country: None (occurrence: None)
  Receive Date: 20100305
  Receipt Date: 20100218
  Transmission Date: 20100710
  Serious: No
  Sender: FDA-Public Use
  Company Number: 2010-00262

PATIENT
  Age: 28 Year
  Sex: Female
  Weight: 56.6996 kg

DRUGS (3)
  1. ZICAM INTENSE SINUS RELIEF [Suspect]
     Dosage: 4XIN3DAYS, OVER 12HR
     Dates: start: 20100213, end: 20100216
  2. TARGET BRAND OF 24HR CLARITIN [Concomitant]
  3. WALGREEN'S BRAND OF SUDAFED [Concomitant]

REACTIONS (2)
  - AGEUSIA [None]
  - ANOSMIA [None]
